FAERS Safety Report 6238708-8 (Version None)
Quarter: 2009Q2

REPORT INFORMATION
  Report Type: 
  Country: None (occurrence: None)
  Receive Date: 20090618
  Receipt Date: 20090604
  Transmission Date: 20091009
  Serious: Yes (Death, Hospitalization)
  Sender: FDA-Public Use
  Company Number: MPS1-1000230

PATIENT
  Age: 3 Year
  Sex: Male
  Weight: 11.5 kg

DRUGS (1)
  1. ALDURAZYME [Suspect]
     Indication: MUCOPOLYSACCHARIDOSIS
     Dosage: 1000 IU, 1X/W, INTRAVENOUS
     Route: 042
     Dates: start: 20070719, end: 20090325

REACTIONS (6)
  - CHEST DISCOMFORT [None]
  - CYANOSIS [None]
  - PNEUMONIA [None]
  - PYREXIA [None]
  - RESPIRATORY DISTRESS [None]
  - RESPIRATORY FAILURE [None]
